FAERS Safety Report 14016738 (Version 1)
Quarter: 2017Q3

REPORT INFORMATION
  Report Type: Report from Study
  Country: ES (occurrence: ES)
  Receive Date: 20170927
  Receipt Date: 20170927
  Transmission Date: 20171128
  Serious: Yes (Other)
  Sender: FDA-Public Use
  Company Number: ES-JNJFOC-20170923042

PATIENT

DRUGS (13)
  1. VINCRISTINE [Suspect]
     Active Substance: VINCRISTINE
     Indication: EWING^S SARCOMA
     Route: 065
  2. DIPHENHYDRAMINE. [Concomitant]
     Active Substance: DIPHENHYDRAMINE
     Route: 065
  3. CYCLOPHOSPHAMIDE. [Suspect]
     Active Substance: CYCLOPHOSPHAMIDE
     Indication: EWING^S SARCOMA
     Dosage: 4.2 G/M2
     Route: 065
  4. DOXORUBICIN HYDROCHLORIDE. [Suspect]
     Active Substance: DOXORUBICIN HYDROCHLORIDE
     Indication: EWING^S SARCOMA
     Route: 065
  5. ETOPOSIDE. [Suspect]
     Active Substance: ETOPOSIDE
     Indication: EWING^S SARCOMA
     Route: 065
  6. ONDANSETRON [Concomitant]
     Active Substance: ONDANSETRON
     Indication: PROPHYLAXIS
     Dosage: PROVIDED ON DAYS 1 AND 8
     Route: 042
  7. DEXAMETHASONE. [Concomitant]
     Active Substance: DEXAMETHASONE
     Route: 065
  8. FILGRASTIM [Concomitant]
     Active Substance: FILGRASTIM
     Route: 058
  9. IFOSFAMIDE. [Suspect]
     Active Substance: IFOSFAMIDE
     Indication: EWING^S SARCOMA
     Dosage: 9 G/M2
     Route: 065
  10. GEMCITABINE [Suspect]
     Active Substance: GEMCITABINE\GEMCITABINE HYDROCHLORIDE
     Indication: EWING^S SARCOMA
     Route: 042
  11. DOCETAXEL. [Suspect]
     Active Substance: DOCETAXEL
     Indication: EWING^S SARCOMA
     Route: 065
  12. RANITIDINE. [Concomitant]
     Active Substance: RANITIDINE
     Dosage: DAY 8
     Route: 042
  13. CARDIOXANE [Concomitant]
     Active Substance: DEXRAZOXANE HYDROCHLORIDE
     Route: 065

REACTIONS (39)
  - Fracture [Unknown]
  - Hyponatraemia [Unknown]
  - Anaemia [Unknown]
  - Neutrophil count decreased [Unknown]
  - Pharyngitis [Unknown]
  - Urinary tract infection [Unknown]
  - Varicella [Unknown]
  - Upper respiratory tract infection [Unknown]
  - Vomiting [Unknown]
  - Lip infection [Unknown]
  - Hypoalbuminaemia [Unknown]
  - Oedema peripheral [Unknown]
  - Rash [Unknown]
  - Lung infection [Unknown]
  - Acute myeloid leukaemia [Unknown]
  - Alanine aminotransferase increased [Unknown]
  - Cough [Unknown]
  - Dyspnoea [Unknown]
  - Epistaxis [Unknown]
  - Aspartate aminotransferase increased [Unknown]
  - Skin infection [Unknown]
  - Otitis media [Unknown]
  - Enterocolitis [Unknown]
  - Sepsis [Unknown]
  - Platelet count decreased [Unknown]
  - Constipation [Unknown]
  - Phlebitis [Unknown]
  - Hypokalaemia [Unknown]
  - Cystitis [Unknown]
  - Mucosal inflammation [Unknown]
  - Diarrhoea [Unknown]
  - Dyspepsia [Unknown]
  - Hypersensitivity [Unknown]
  - Respiratory failure [Unknown]
  - Febrile neutropenia [Unknown]
  - Pain [Unknown]
  - Oral candidiasis [Unknown]
  - Palmar-plantar erythrodysaesthesia syndrome [Unknown]
  - Nausea [Unknown]
